FAERS Safety Report 21160327 (Version 2)
Quarter: 2022Q3

REPORT INFORMATION
  Report Type: Report from Study
  Country: FR (occurrence: None)
  Receive Date: 20220802
  Receipt Date: 20220809
  Transmission Date: 20221027
  Serious: Yes (Death)
  Sender: FDA-Public Use
  Company Number: 2022A272672

PATIENT
  Age: 23110 Day
  Sex: Female
  Weight: 88 kg

DRUGS (1)
  1. EVUSHELD [Suspect]
     Active Substance: CILGAVIMAB\TIXAGEVIMAB
     Indication: COVID-19
     Dosage: ONCE/SINGLE ADMINISTRATION
     Route: 030
     Dates: start: 20220119

REACTIONS (3)
  - COVID-19 [Fatal]
  - Bronchostenosis [Fatal]
  - Hypoxia [Fatal]

NARRATIVE: CASE EVENT DATE: 20220219
